FAERS Safety Report 8410020-8 (Version None)
Quarter: 2012Q2

REPORT INFORMATION
  Report Type: 
  Country: None (occurrence: None)
  Receive Date: 20120529
  Receipt Date: 20120518
  Transmission Date: 20120825
  Serious: Yes (Other)
  Sender: FDA-Public Use
  Company Number: AUR-APL-2012-02366

PATIENT
  Age: 65 Year
  Sex: Female

DRUGS (2)
  1. ERGOTAMINE [Concomitant]
  2. ZOLPIDEM [Suspect]
     Indication: PRODUCT USED FOR UNKNOWN INDICATION
     Dosage: (10 MG),

REACTIONS (1)
  - SOMNAMBULISM [None]
